FAERS Safety Report 8788931 (Version 2)
Quarter: 2012Q4

REPORT INFORMATION
  Report Type: 
  Country: US (occurrence: US)
  Receive Date: 20120917
  Receipt Date: 20121005
  Transmission Date: 20130627
  Serious: No
  Sender: FDA-Public Use
  Company Number: US-PFIZER INC-2012227330

PATIENT
  Age: 61 Year
  Sex: Male
  Weight: 76.19 kg

DRUGS (5)
  1. VIAGRA [Suspect]
     Indication: ERECTILE DYSFUNCTION
     Dosage: 50 mg, as needed
     Route: 048
     Dates: start: 2006, end: 2006
  2. VIAGRA [Suspect]
     Dosage: 100 mg, as needed
     Route: 048
     Dates: start: 2006, end: 2006
  3. VIAGRA [Suspect]
     Dosage: UNK, as needed
     Route: 048
     Dates: start: 201209
  4. LANTUS [Concomitant]
     Indication: DIABETES MELLITUS
     Dosage: UNK, 1x/day
     Route: 030
  5. HUMALOG [Concomitant]
     Indication: DIABETES MELLITUS
     Dosage: UNK, as needed
     Route: 030

REACTIONS (3)
  - Glycosylated haemoglobin increased [Unknown]
  - Blood glucose increased [Unknown]
  - Drug ineffective [Unknown]
